FAERS Safety Report 18839426 (Version 1)
Quarter: 2021Q1

REPORT INFORMATION
  Report Type: Report from Study
  Country: US (occurrence: US)
  Receive Date: 20210203
  Receipt Date: 20210203
  Transmission Date: 20210419
  Serious: No
  Sender: FDA-Public Use
  Company Number: US-EXELIXIS-CABO-20033823

PATIENT
  Sex: Male

DRUGS (1)
  1. CABOMETYX [Suspect]
     Active Substance: CABOZANTINIB S-MALATE
     Indication: RENAL CANCER
     Dosage: 20 MG, QD
     Route: 048
     Dates: start: 20200125

REACTIONS (8)
  - Oral disorder [Unknown]
  - Decreased appetite [Unknown]
  - Muscle spasms [Unknown]
  - Dry skin [Unknown]
  - Dysphagia [Unknown]
  - Secretion discharge [Unknown]
  - Skin papilloma [Unknown]
  - Sensitive skin [Unknown]
